FAERS Safety Report 15254983 (Version 1)
Quarter: 2018Q3

REPORT INFORMATION
  Report Type: Spontaneous
  Country: US (occurrence: US)
  Receive Date: 20180717
  Receipt Date: 20180717
  Transmission Date: 20181010
  Serious: No
  Sender: FDA-Public Use
  Company Number: None

PATIENT
  Sex: Male

DRUGS (6)
  1. ONDANSETRON [Concomitant]
     Active Substance: ONDANSETRON
  2. LAMOTRIGINE. [Concomitant]
     Active Substance: LAMOTRIGINE
  3. MIRALAX [Concomitant]
     Active Substance: POLYETHYLENE GLYCOL 3350
  4. KEPPRA [Concomitant]
     Active Substance: LEVETIRACETAM
  5. GLEOSTINE [Suspect]
     Active Substance: LOMUSTINE
     Indication: BRAIN NEOPLASM MALIGNANT
     Dosage: ON DAY 1 OF A 42 DAY CYCLE
     Route: 048
     Dates: start: 20180301
  6. MATULANE [Concomitant]
     Active Substance: PROCARBAZINE HYDROCHLORIDE

REACTIONS (1)
  - Nausea [None]
